FAERS Safety Report 23230702 (Version 1)
Quarter: 2023Q4

REPORT INFORMATION
  Report Type: Spontaneous
  Country: US (occurrence: None)
  Receive Date: 20231125
  Receipt Date: 20231125
  Transmission Date: 20240109
  Serious: Yes (Death)
  Sender: FDA-Public Use
  Company Number: None

PATIENT
  Age: 58 Year
  Sex: Male

DRUGS (1)
  1. SILIQ [Suspect]
     Active Substance: BRODALUMAB
     Indication: Psoriasis
     Dosage: FREQUENCY : DAILY;?OTHER ROUTE : INJECTABLE;?
     Route: 050
     Dates: start: 20180306, end: 20230513

REACTIONS (1)
  - Death [None]

NARRATIVE: CASE EVENT DATE: 20230513
